FAERS Safety Report 15048426 (Version 1)
Quarter: 2018Q2

REPORT INFORMATION
  Report Type: Report from Study
  Country: CA (occurrence: CA)
  Receive Date: 20180622
  Receipt Date: 20180622
  Transmission Date: 20180711
  Serious: Yes (Other)
  Sender: FDA-Public Use
  Company Number: CA-AMGEN-CANSL2018081113

PATIENT
  Age: 70 Year
  Sex: Male

DRUGS (1)
  1. ENBREL [Suspect]
     Active Substance: ETANERCEPT
     Indication: PSORIASIS
     Dosage: 50 MG, QWK
     Route: 065
     Dates: start: 20131011

REACTIONS (9)
  - Hepatic cirrhosis [Unknown]
  - Palpitations [Unknown]
  - Procedural pain [Not Recovered/Not Resolved]
  - Incision site haemorrhage [Unknown]
  - Malaise [Unknown]
  - Sleep disorder due to a general medical condition [Unknown]
  - Somnolence [Unknown]
  - Abdominal pain [Unknown]
  - Night sweats [Unknown]

NARRATIVE: CASE EVENT DATE: 2018
